FAERS Safety Report 25669550 (Version 2)
Quarter: 2025Q4

REPORT INFORMATION
  Report Type: Spontaneous
  Country: CL (occurrence: None)
  Receive Date: 20250812
  Receipt Date: 20251016
  Transmission Date: 20260118
  Serious: Yes (Other)
  Sender: ORGANON
  Company Number: CL-ORGANON-O2507CHL002922

PATIENT
  Age: 46 Year
  Sex: Female
  Weight: 84 kg

DRUGS (3)
  1. ETONOGESTREL [Suspect]
     Active Substance: ETONOGESTREL
     Dosage: 1 IMPLANT
  2. ETONOGESTREL [Suspect]
     Active Substance: ETONOGESTREL
     Dosage: 1 IMPLANT
  3. ETONOGESTREL [Suspect]
     Active Substance: ETONOGESTREL
     Dosage: 1 IMPLANT IN UPPER LEFT ARM

REACTIONS (7)
  - Bronchiectasis [Unknown]
  - Hypoacusis [Unknown]
  - Complication associated with device [Not Recovered/Not Resolved]
  - Device issue [Not Recovered/Not Resolved]
  - Device deployment issue [Not Recovered/Not Resolved]
  - Incorrect product administration duration [Unknown]
  - Complication of device removal [Not Recovered/Not Resolved]

NARRATIVE: CASE EVENT DATE: 20220101
